FAERS Safety Report 9636791 (Version 2)
Quarter: 2013Q4

REPORT INFORMATION
  Report Type: Spontaneous
  Country: US (occurrence: US)
  Receive Date: 20131022
  Receipt Date: 20131119
  Transmission Date: 20140711
  Serious: No
  Sender: FDA-Public Use
  Company Number: US-009507513-1310USA005638

PATIENT
  Age: 43 Year
  Sex: Female
  Weight: 107.3 kg

DRUGS (2)
  1. PEGINTRON [Suspect]
     Indication: HEPATITIS C
     Dosage: 150 MICROGRAM, WEEKLY
     Route: 058
     Dates: start: 20131002
  2. REBETOL [Suspect]
     Dosage: 600 MG, BID
     Route: 048
     Dates: start: 20131002

REACTIONS (3)
  - Influenza [Not Recovered/Not Resolved]
  - Dizziness [Not Recovered/Not Resolved]
  - Nausea [Not Recovered/Not Resolved]
